FAERS Safety Report 21951645 (Version 3)
Quarter: 2023Q1

REPORT INFORMATION
  Report Type: Spontaneous
  Country: US (occurrence: None)
  Receive Date: 20230203
  Receipt Date: 20230324
  Transmission Date: 20230418
  Serious: Yes (Death, Other)
  Sender: FDA-Public Use
  Company Number: 2023A029434

PATIENT
  Age: 67 Year
  Sex: Female

DRUGS (2)
  1. TEZSPIRE [Suspect]
     Active Substance: TEZEPELUMAB-EKKO
     Indication: Asthma
     Dosage: ONLY HAD ONE DOSE
     Route: 058
     Dates: start: 20230106
  2. PREDNISONE [Concomitant]
     Active Substance: PREDNISONE
     Indication: Small cell lung cancer

REACTIONS (2)
  - Cardiac arrest [Fatal]
  - Unresponsive to stimuli [Fatal]

NARRATIVE: CASE EVENT DATE: 20230128
